FAERS Safety Report 5393745-0 (Version None)
Quarter: 2007Q3

REPORT INFORMATION
  Report Type: 
  Country: None (occurrence: None)
  Receive Date: 20070719
  Receipt Date: 20070719
  Transmission Date: 20080115
  Serious: Yes (Hospitalization)
  Sender: FDA-Public Use
  Company Number: None

PATIENT
  Age: 55 Year
  Sex: Male
  Weight: 79.4 kg

DRUGS (14)
  1. TRIAMTERENE AND HYDROCHLOROTHIAZIDE [Suspect]
  2. PAROXETINE HCL [Concomitant]
  3. TEMAZEPAM [Concomitant]
  4. AMLODIPINE BESYLATE [Concomitant]
  5. MEPRAZOLE [Concomitant]
  6. CLOBETASOL PROPIONATE [Concomitant]
  7. ACETAMINOPHEN [Concomitant]
  8. KETOCONAZOLE [Concomitant]
  9. SIMVASTATIN [Concomitant]
  10. CLOBETASOL PROPIONATE [Concomitant]
  11. COAL TAR [Concomitant]
  12. CLONAZEPAM [Concomitant]
  13. OLOPATADINE HCL [Concomitant]
  14. DM 10/GUAIFENESN 100MG/5ML (ALC-F/BF) SYR [Concomitant]

REACTIONS (3)
  - PRURITUS [None]
  - RASH [None]
  - URTICARIA [None]
